FAERS Safety Report 25905935 (Version 1)
Quarter: 2025Q4

REPORT INFORMATION
  Report Type: Spontaneous
  Country: SA (occurrence: SA)
  Receive Date: 20251010
  Receipt Date: 20251010
  Transmission Date: 20260117
  Serious: Yes (Other)
  Sender: SEPTODONT
  Company Number: SA-SEPTODONT-2025020058

PATIENT
  Age: 30 Year
  Sex: Female

DRUGS (1)
  1. ARTICAINE HYDROCHLORIDE\EPINEPHRINE BITARTRATE [Suspect]
     Active Substance: ARTICAINE HYDROCHLORIDE\EPINEPHRINE BITARTRATE
     Indication: Dental local anaesthesia
     Route: 004

REACTIONS (2)
  - Diplegia [Recovered/Resolved]
  - Dysstasia [Recovered/Resolved]
